FAERS Safety Report 24575281 (Version 3)
Quarter: 2024Q4

REPORT INFORMATION
  Report Type: Report from Study
  Country: US (occurrence: US)
  Receive Date: 20241104
  Receipt Date: 20241212
  Transmission Date: 20250115
  Serious: Yes (Hospitalization, Other)
  Sender: ROCHE
  Company Number: US-ROCHE-10000119282

PATIENT
  Age: 55 Year
  Sex: Female
  Weight: 99 kg

DRUGS (32)
  1. XOLAIR [Suspect]
     Active Substance: OMALIZUMAB
     Indication: Asthma
     Route: 058
  2. TAMIFLU [Suspect]
     Active Substance: OSELTAMIVIR PHOSPHATE
     Indication: Asthma
     Route: 065
  3. ADVAIR HFA [Concomitant]
     Active Substance: FLUTICASONE PROPIONATE\SALMETEROL XINAFOATE
     Dosage: 1 PUFF
     Dates: start: 20231031
  4. ALBUTEROL SULFATE [Concomitant]
     Active Substance: ALBUTEROL SULFATE
     Dosage: 2 PUFFS EVERY FOUR HOURS AS NEEDED
     Dates: start: 20240702
  5. AMOXICILLIN [Concomitant]
     Active Substance: AMOXICILLIN
     Route: 048
     Dates: start: 20240628
  6. AMOXICILLIN\CLAVULANATE POTASSIUM [Concomitant]
     Active Substance: AMOXICILLIN\CLAVULANATE POTASSIUM
     Dosage: TAKE 1 TABLET EVERY 12 HOURS FOR 10 DAYS
     Route: 048
     Dates: start: 20240226
  7. AZITHROMYCIN [Concomitant]
     Active Substance: AZITHROMYCIN
     Route: 048
     Dates: start: 20240904
  8. BENZONATATE [Concomitant]
     Active Substance: BENZONATATE
     Route: 048
     Dates: start: 20240628
  9. EPINEPHRINE [Concomitant]
     Active Substance: EPINEPHRINE
     Dates: start: 20230912
  10. FLUCONAZOLE [Concomitant]
     Active Substance: FLUCONAZOLE
     Route: 048
     Dates: start: 20230920
  11. IPRATROPIUM [Concomitant]
     Active Substance: IPRATROPIUM
     Dosage: INHALE 1 VIAL VIA NEBULIZER EVERY 6 HOURS AS NEEDED.
     Dates: start: 20240702
  12. KETOROLAC [Concomitant]
     Active Substance: KETOROLAC TROMETHAMINE
     Dosage: ONE TABLET EVERY 6 HOURS AS NEEDED.
     Route: 048
     Dates: start: 20240411
  13. LEVALBUTEROL HFA [Concomitant]
     Dosage: 2 PUFF
     Dates: start: 20241024
  14. LISINOPRIL [Concomitant]
     Active Substance: LISINOPRIL
     Route: 048
     Dates: start: 20231031
  15. METFORMIN [Concomitant]
     Active Substance: METFORMIN HYDROCHLORIDE
     Route: 048
     Dates: start: 20231031
  16. METHYLPHENIDATE [Concomitant]
     Active Substance: METHYLPHENIDATE
     Route: 048
     Dates: start: 20240822
  17. MONTELUKAST [Concomitant]
     Active Substance: MONTELUKAST
     Route: 048
     Dates: start: 20240708
  18. NYSTATIN [Concomitant]
     Active Substance: NYSTATIN
     Dosage: SHAKE LIQUID AND TAKE 5 MAL THREE TIMES PER DAY AS NEEDED.
     Dates: start: 20231027
  19. ONDANSETRON [Concomitant]
     Active Substance: ONDANSETRON
     Dosage: TAKE ONE TABLET EVERY 8 HOURS AS NEEDED.
     Route: 048
     Dates: start: 20240418
  20. OSELTAMIVIR [Concomitant]
     Active Substance: OSELTAMIVIR
     Route: 048
     Dates: start: 20240123
  21. OXYCODONE [Concomitant]
     Active Substance: OXYCODONE
     Route: 048
     Dates: start: 20240830
  22. OXYCODONE AND ACETAMINOPHEN [Concomitant]
     Active Substance: ACETAMINOPHEN\OXYCODONE HYDROCHLORIDE
     Dosage: TAKE 1-2  TABLETS EVERY DAY AS NEEDED.
     Route: 048
     Dates: start: 20231208
  23. OZEMPIC [Concomitant]
     Active Substance: SEMAGLUTIDE
     Dosage: 0.25 OR 0.5 MG
     Route: 058
     Dates: start: 20240404
  24. PREDNISONE [Concomitant]
     Active Substance: PREDNISONE
     Route: 048
     Dates: start: 20240828
  25. PREDNISONE [Concomitant]
     Active Substance: PREDNISONE
     Route: 048
  26. REXULTI [Concomitant]
     Active Substance: BREXPIPRAZOLE
     Route: 048
     Dates: start: 20240103
  27. SERTRALINE [Concomitant]
     Active Substance: SERTRALINE HYDROCHLORIDE
     Dosage: TAKE 1 AND 1/2 TABLET DAILY
     Route: 048
     Dates: start: 20240418
  28. SPIRIVA RESPIMAT [Concomitant]
     Active Substance: TIOTROPIUM BROMIDE
     Dosage: 2 PUFFS EVERY MORNING.
     Route: 048
     Dates: start: 20240103
  29. SUMATRIPTAN [Concomitant]
     Active Substance: SUMATRIPTAN
     Dosage: AS NEEDED.
     Route: 048
     Dates: start: 20240423
  30. SYMBICORT [Concomitant]
     Active Substance: BUDESONIDE\FORMOTEROL FUMARATE DIHYDRATE
     Dosage: 2 PUFFS
     Dates: start: 20241017
  31. TIZANIDINE [Concomitant]
     Active Substance: TIZANIDINE
     Dosage: AS NEEDED
     Dates: start: 20240729
  32. VENTOLIN HFA [Concomitant]
     Active Substance: ALBUTEROL SULFATE
     Dosage: 2 PUFFS  EVERY 6 HOURS, AS NEEDED
     Dates: start: 20231101

REACTIONS (26)
  - Tremor [Unknown]
  - Rhinitis allergic [Unknown]
  - Illness [Unknown]
  - Respiratory distress [Unknown]
  - Anaphylactic reaction [Unknown]
  - Malaise [Unknown]
  - Otorrhoea [Unknown]
  - Throat clearing [Unknown]
  - Throat irritation [Unknown]
  - Nasal congestion [Unknown]
  - Rhinorrhoea [Unknown]
  - Sneezing [Unknown]
  - Eye irritation [Unknown]
  - Dry eye [Unknown]
  - Ocular hyperaemia [Unknown]
  - Eye pruritus [Unknown]
  - Sleep disorder [Unknown]
  - Anxiety [Unknown]
  - Insomnia [Unknown]
  - Dry skin [Unknown]
  - Alopecia [Unknown]
  - Rash [Unknown]
  - Arthralgia [Unknown]
  - Joint swelling [Unknown]
  - Visual impairment [Unknown]
  - Confusional state [Unknown]
